FAERS Safety Report 9147408 (Version 3)
Quarter: 2014Q2

REPORT INFORMATION
  Report Type: Report from Study
  Country: JP (occurrence: JP)
  Receive Date: 20130307
  Receipt Date: 20140610
  Transmission Date: 20141212
  Serious: Yes (Other)
  Sender: FDA-Public Use
  Company Number: JP-GLAXOSMITHKLINE-B0871648A

PATIENT
  Age: 52 Year
  Sex: Female

DRUGS (3)
  1. VOTRIENT 200MG [Suspect]
     Indication: SOFT TISSUE SARCOMA
     Dosage: 800MG PER DAY
     Route: 048
     Dates: start: 20130118, end: 20130314
  2. VOTRIENT 200MG [Suspect]
     Indication: SOFT TISSUE SARCOMA
     Dosage: 600MG PER DAY
     Route: 048
     Dates: start: 20130315, end: 20130725
  3. GAMOFA [Suspect]
     Indication: ABDOMINAL PAIN UPPER
     Route: 048

REACTIONS (7)
  - Pneumothorax [Recovered/Resolved]
  - Nausea [Not Recovered/Not Resolved]
  - Abdominal pain upper [Not Recovered/Not Resolved]
  - Malaise [Not Recovered/Not Resolved]
  - Alanine aminotransferase increased [Recovered/Resolved]
  - Aspartate aminotransferase increased [Recovered/Resolved]
  - Hypothyroidism [Not Recovered/Not Resolved]
